FAERS Safety Report 5938361-4 (Version None)
Quarter: 2008Q4

REPORT INFORMATION
  Report Type: 
  Country: None (occurrence: None)
  Receive Date: 20081103
  Receipt Date: 20081027
  Transmission Date: 20090506
  Serious: Yes (Other)
  Sender: FDA-Public Use
  Company Number: DE-TEVA-179128ISR

PATIENT
  Age: 30 Year
  Sex: Female

DRUGS (3)
  1. AMITRIPTYLINE HCL [Suspect]
     Indication: DEPRESSION
  2. PAROXETINE HCL [Suspect]
     Indication: DEPRESSION
  3. VALPROIC ACID [Suspect]
     Indication: DEPRESSION

REACTIONS (2)
  - DRUG TOXICITY [None]
  - GRAND MAL CONVULSION [None]
